FAERS Safety Report 16769674 (Version 4)
Quarter: 2020Q1

REPORT INFORMATION
  Report Type: Spontaneous
  Country: DE (occurrence: DE)
  Receive Date: 20190903
  Receipt Date: 20200217
  Transmission Date: 20200409
  Serious: Yes (Other)
  Sender: FDA-Public Use
  Company Number: PHHY2019DE129462

PATIENT
  Sex: Male

DRUGS (2)
  1. VALSARTAN HEXAL 160 MG FILMTABLETTEN [Suspect]
     Active Substance: VALSARTAN
     Indication: HYPERTENSION
     Dosage: 160 MG, QD
     Route: 065
     Dates: start: 201703, end: 20180711
  2. CANDESARTAN. [Suspect]
     Active Substance: CANDESARTAN
     Indication: HYPERTENSION
     Dosage: 16 MG, UNK
     Route: 065
     Dates: start: 201807

REACTIONS (5)
  - Anxiety disorder [Recovering/Resolving]
  - Arrhythmia [Recovering/Resolving]
  - Anxiety disorder [Unknown]
  - Angina pectoris [Recovering/Resolving]
  - Anxiety disorder [Recovered/Resolved]

NARRATIVE: CASE EVENT DATE: 2017
